FAERS Safety Report 4501606-1 (Version None)
Quarter: 2004Q3

REPORT INFORMATION
  Report Type: 
  Country: None (occurrence: None)
  Receive Date: 20040928
  Receipt Date: 20040831
  Transmission Date: 20050211
  Serious: No
  Sender: FDA-Public Use
  Company Number: 04P-163-0271954-00

PATIENT
  Age: 59 Year
  Sex: Male
  Weight: 96.6162 kg

DRUGS (8)
  1. HUMIRA [Suspect]
     Indication: RHEUMATOID ARTHRITIS
     Dosage: 40 MG, 1 IN 2 WK, SUBCUTANEOUS
     Route: 058
     Dates: start: 20040501
  2. AMITRIOPTYLINE [Concomitant]
  3. OXYCODONE HCL [Concomitant]
  4. OMEPRAZOLE [Concomitant]
  5. RISPERIDONE [Concomitant]
  6. FUROSEMIDE [Concomitant]
  7. POTASSIUM [Concomitant]
  8. UNSPECIFIED INHALERS [Concomitant]

REACTIONS (2)
  - COUGH [None]
  - DYSPNOEA [None]
